FAERS Safety Report 18217194 (Version 2)
Quarter: 2020Q3

REPORT INFORMATION
  Report Type: Spontaneous
  Country: US (occurrence: US)
  Receive Date: 20200901
  Receipt Date: 20200910
  Transmission Date: 20201103
  Serious: No
  Sender: FDA-Public Use
  Company Number: US-PFIZER INC-2020335868

PATIENT
  Age: 59 Year
  Sex: Female

DRUGS (1)
  1. INLYTA [Suspect]
     Active Substance: AXITINIB
     Dosage: 8 MG [4 TABLETS TWICE DAILY, 12 HOURS APART]

REACTIONS (4)
  - Neoplasm progression [Unknown]
  - Swollen tongue [Unknown]
  - Tongue erythema [Unknown]
  - Odynophagia [Unknown]
